FAERS Safety Report 24532758 (Version 2)
Quarter: 2024Q4

REPORT INFORMATION
  Report Type: Spontaneous
  Country: AU (occurrence: AU)
  Receive Date: 20241022
  Receipt Date: 20241126
  Transmission Date: 20250115
  Serious: No
  Sender: REGENERON
  Company Number: AU-BAYER-2024A149694

PATIENT

DRUGS (1)
  1. EYLEA [Suspect]
     Active Substance: AFLIBERCEPT
     Indication: Optic neuropathy

REACTIONS (1)
  - Product use in unapproved indication [Unknown]
